FAERS Safety Report 17207966 (Version 3)
Quarter: 2021Q4

REPORT INFORMATION
  Report Type: Report from Study
  Country: DE (occurrence: DE)
  Receive Date: 20191227
  Receipt Date: 20211123
  Transmission Date: 20220303
  Serious: Yes (Hospitalization)
  Sender: FDA-Public Use
  Company Number: DE-ACCORD-153846

PATIENT
  Sex: Female
  Weight: 66 kg

DRUGS (4)
  1. PEGFILGRASTIM [Suspect]
     Active Substance: PEGFILGRASTIM
     Indication: Product used for unknown indication
     Dosage: 6 MILLIGRAM, 1 CYCLE, (INJECTION SOLUTION)
     Dates: start: 20190713, end: 20190713
  2. PEGFILGRASTIM [Suspect]
     Active Substance: PEGFILGRASTIM
     Dosage: 6 MILLIGRAM, 2 CYCLE, (INJECTION SOLUTION
     Dates: start: 20190727, end: 20190727
  3. PEGFILGRASTIM [Suspect]
     Active Substance: PEGFILGRASTIM
     Dosage: 6 MILLIGRAM, 3 CYCLE, (INJECTION SOLUTION
     Dates: start: 20190810, end: 20190810
  4. PEGFILGRASTIM [Suspect]
     Active Substance: PEGFILGRASTIM
     Dosage: 6 MILLIGRAM, 4 CYCLE, (INJECTION SOLUTION
     Dates: start: 20190824, end: 20190824

REACTIONS (6)
  - Body temperature increased [Unknown]
  - General physical health deterioration [Unknown]
  - Pneumonia [Unknown]
  - Productive cough [Unknown]
  - Febrile neutropenia [Unknown]
  - Emphysema [Recovered/Resolved]

NARRATIVE: CASE EVENT DATE: 20190830
